FAERS Safety Report 23998497 (Version 1)
Quarter: 2024Q2

REPORT INFORMATION
  Report Type: Spontaneous
  Country: DE (occurrence: DE)
  Receive Date: 20240621
  Receipt Date: 20240621
  Transmission Date: 20240716
  Serious: Yes (Other)
  Sender: FDA-Public Use
  Company Number: DE-AMK-276236

PATIENT
  Sex: Female

DRUGS (1)
  1. LUCENTIS [Suspect]
     Active Substance: RANIBIZUMAB
     Indication: Neovascular age-related macular degeneration
     Dosage: 1 DOSE
     Route: 065
     Dates: start: 20240502

REACTIONS (4)
  - Visual impairment [Recovered/Resolved]
  - Blindness transient [Recovered/Resolved]
  - Inadvertent injection air bubble [Recovered/Resolved]
  - Intraocular pressure test abnormal [Recovered/Resolved]

NARRATIVE: CASE EVENT DATE: 20240502
